FAERS Safety Report 5387291-8 (Version None)
Quarter: 2007Q3

REPORT INFORMATION
  Report Type: 
  Country: None (occurrence: None)
  Receive Date: 20070716
  Receipt Date: 20070712
  Transmission Date: 20080115
  Serious: Yes (Life-Threatening, Hospitalization, Other)
  Sender: FDA-Public Use
  Company Number: PHNU2007DE02501

PATIENT
  Age: 79 Year
  Sex: Female
  Weight: 91 kg

DRUGS (8)
  1. EXFORGE [Suspect]
     Indication: HYPERTENSION
     Dosage: 1 DF/D
     Route: 048
     Dates: start: 20070312, end: 20070611
  2. SPIRONOLACTONE [Suspect]
     Dosage: 1 DF/D
     Route: 048
     Dates: start: 20070312, end: 20070611
  3. FUROSEMIDE [Suspect]
     Dates: start: 20070312, end: 20070611
  4. ASPIRIN [Concomitant]
     Dosage: 1 DF, QD
     Route: 048
  5. BISOPROLOL [Concomitant]
     Dosage: 1 DF, BID
  6. MOXONIDINE [Concomitant]
     Dosage: 1 DF, QD
  7. ALLOPURINOL [Concomitant]
     Dosage: 1 DF, QD
  8. EUTHYROX [Concomitant]
     Dosage: 1 DF, QD

REACTIONS (7)
  - ASTHENIA [None]
  - BLOOD CREATININE INCREASED [None]
  - FALL [None]
  - FORMICATION [None]
  - HYPERKALAEMIA [None]
  - POLYNEUROPATHY [None]
  - RENAL FAILURE ACUTE [None]
